FAERS Safety Report 10487694 (Version 1)
Quarter: 2014Q4

REPORT INFORMATION
  Report Type: Spontaneous
  Country: JP (occurrence: JP)
  Receive Date: 20141001
  Receipt Date: 20141001
  Transmission Date: 20150528
  Serious: Yes (Hospitalization)
  Sender: FDA-Public Use
  Company Number: PHHY2014JP126874

PATIENT
  Age: 47 Year
  Sex: Male

DRUGS (1)
  1. ZOMETA [Suspect]
     Active Substance: ZOLEDRONIC ACID
     Indication: HYPERCALCAEMIA
     Dosage: 3 MG, UNK

REACTIONS (4)
  - Hungry bone syndrome [Recovering/Resolving]
  - Hypokalaemia [Recovering/Resolving]
  - Condition aggravated [Recovering/Resolving]
  - Tetany [Recovering/Resolving]
